FAERS Safety Report 9154337 (Version 1)
Quarter: 2013Q1

REPORT INFORMATION
  Report Type: Spontaneous
  Country: ES (occurrence: ES)
  Receive Date: 20130311
  Receipt Date: 20130311
  Transmission Date: 20140127
  Serious: Yes (Other)
  Sender: FDA-Public Use
  Company Number: ES-BAYER-2013-029745

PATIENT
  Age: 75 Year
  Sex: Male

DRUGS (5)
  1. LEVITRA [Suspect]
     Indication: ERECTILE DYSFUNCTION
     Dosage: UNK
     Dates: start: 20130301
  2. ATORVASTATIN [Concomitant]
     Dosage: UNK
  3. PERMIXON [Concomitant]
     Dosage: UNK
  4. ANACERVIX [Concomitant]
     Dosage: UNK
  5. LORMETAZEPAM [Concomitant]

REACTIONS (1)
  - Blood urine present [None]
